FAERS Safety Report 5701664-2 (Version None)
Quarter: 2008Q2

REPORT INFORMATION
  Report Type: 
  Country: None (occurrence: None)
  Receive Date: 20080408
  Receipt Date: 20080317
  Transmission Date: 20081010
  Serious: Yes (Death, Hospitalization)
  Sender: FDA-Public Use
  Company Number: MK-6023250

PATIENT
  Age: 17 Year
  Sex: Male
  Weight: 50.3493 kg

DRUGS (2)
  1. AMNESTEEM [Suspect]
     Indication: ACNE CONGLOBATA
     Dosage: 10 MG; EVERY MORNING; ORAL
     Route: 048
     Dates: start: 20060327, end: 20060529
  2. AMNESTEEM [Suspect]
     Indication: ACNE CONGLOBATA
     Dosage: 40 MG; AT BEDTIME; ORAL
     Route: 048
     Dates: start: 20060327, end: 20060529

REACTIONS (7)
  - BACK PAIN [None]
  - COMPLETED SUICIDE [None]
  - DISCOMFORT [None]
  - DRY EYE [None]
  - GUN SHOT WOUND [None]
  - LIP DRY [None]
  - MENTAL DISORDER [None]
